FAERS Safety Report 8449762-7 (Version None)
Quarter: 2012Q2

REPORT INFORMATION
  Report Type: 
  Country: None (occurrence: None)
  Receive Date: 20120613
  Receipt Date: 20120613
  Transmission Date: 20120825
  Serious: Yes (Life-Threatening)
  Sender: FDA-Public Use
  Company Number: None

PATIENT
  Age: 54 Year
  Sex: Female
  Weight: 95.9 kg

DRUGS (1)
  1. MORPHINE [Suspect]
     Dates: start: 20120309

REACTIONS (1)
  - UNRESPONSIVE TO STIMULI [None]
